FAERS Safety Report 5682756-3 (Version None)
Quarter: 2008Q1

REPORT INFORMATION
  Report Type: 
  Country: None (occurrence: None)
  Receive Date: 20080326
  Receipt Date: 20080326
  Transmission Date: 20080703
  Serious: Yes (Other)
  Sender: FDA-Public Use
  Company Number: None

PATIENT
  Age: 83 Year
  Sex: Female
  Weight: 92.5338 kg

DRUGS (1)
  1. CEPHALEXIN [Suspect]
     Indication: INFECTION PROPHYLAXIS
     Dosage: 250MG  1 CAP 4X/DAY 5 DAY  PO
     Route: 048
     Dates: start: 20080320, end: 20080323

REACTIONS (1)
  - DIZZINESS [None]
